FAERS Safety Report 5784595-1 (Version None)
Quarter: 2008Q2

REPORT INFORMATION
  Report Type: 
  Country: None (occurrence: None)
  Receive Date: 20080624
  Receipt Date: 20070521
  Transmission Date: 20081010
  Serious: No
  Sender: FDA-Public Use
  Company Number: US-ASTRAZENECA-2007UW12559

PATIENT

DRUGS (1)
  1. PULMICORT RESPULES [Suspect]
     Route: 055

REACTIONS (4)
  - CRYING [None]
  - INSOMNIA [None]
  - MIDDLE INSOMNIA [None]
  - PSYCHOMOTOR HYPERACTIVITY [None]
